FAERS Safety Report 5002406-9 (Version None)
Quarter: 2006Q2

REPORT INFORMATION
  Report Type: 
  Country: None (occurrence: None)
  Receive Date: 20060510
  Receipt Date: 20060427
  Transmission Date: 20061013
  Serious: Yes (Other)
  Sender: FDA-Public Use
  Company Number: 2006AD000029

PATIENT
  Age: 37 Year
  Sex: Female
  Weight: 71.6683 kg

DRUGS (1)
  1. KEFLEX [Suspect]
     Indication: STREPTOCOCCAL INFECTION
     Dosage: 500 MG; QID;
     Dates: start: 20060330, end: 20060410

REACTIONS (8)
  - ABASIA [None]
  - ARTHRALGIA [None]
  - IMPAIRED WORK ABILITY [None]
  - JOINT STIFFNESS [None]
  - JOINT SWELLING [None]
  - MUSCLE SPASMS [None]
  - PAIN IN EXTREMITY [None]
  - RASH PAPULAR [None]
